FAERS Safety Report 21414461 (Version 2)
Quarter: 2022Q4

REPORT INFORMATION
  Report Type: Report from Study
  Country: US (occurrence: US)
  Receive Date: 20221006
  Receipt Date: 20221111
  Transmission Date: 20230112
  Serious: No
  Sender: FDA-Public Use
  Company Number: US-ABBVIE-4134395

PATIENT
  Sex: Female

DRUGS (3)
  1. VENCLEXTA [Suspect]
     Active Substance: VENETOCLAX
     Indication: Plasma cell myeloma
     Dosage: TAKE 4 TABLET(S) BY MOUTH DAILY, STRENGTH-100 MILLIGRAM
     Route: 048
  2. VENCLEXTA [Suspect]
     Active Substance: VENETOCLAX
     Indication: Plasma cell myeloma
     Dosage: TAKE 6 TABLET(S) BY MOUTH EVERY 24 HOUR
     Route: 048
  3. VENCLEXTA [Suspect]
     Active Substance: VENETOCLAX
     Indication: Plasma cell myeloma
     Route: 048

REACTIONS (3)
  - Off label use [Unknown]
  - Product container seal issue [Unknown]
  - Product dispensing error [Unknown]

NARRATIVE: CASE EVENT DATE: 20220101
